FAERS Safety Report 15778521 (Version 2)
Quarter: 2019Q1

REPORT INFORMATION
  Report Type: Report from Study
  Country: US (occurrence: US)
  Receive Date: 20181231
  Receipt Date: 20190125
  Transmission Date: 20190417
  Serious: Yes (Other)
  Sender: FDA-Public Use
  Company Number: US-JAZZ-2018-US-017754

PATIENT
  Sex: Female

DRUGS (1)
  1. XYREM [Suspect]
     Active Substance: SODIUM OXYBATE
     Indication: NARCOLEPSY
     Dosage: 2.25 G, BID
     Route: 048
     Dates: start: 201811

REACTIONS (11)
  - Feeling hot [Unknown]
  - Nasopharyngitis [Not Recovered/Not Resolved]
  - Hot flush [Unknown]
  - Psoriatic arthropathy [Unknown]
  - Anger [Unknown]
  - Arthritis [Unknown]
  - Blood pressure fluctuation [Recovered/Resolved]
  - Stress [Unknown]
  - Nausea [Not Recovered/Not Resolved]
  - Migraine [Not Recovered/Not Resolved]
  - Somnolence [Not Recovered/Not Resolved]

NARRATIVE: CASE EVENT DATE: 2018
